FAERS Safety Report 4666653-8 (Version None)
Quarter: 2005Q2

REPORT INFORMATION
  Report Type: 
  Country: None (occurrence: None)
  Receive Date: 20050518
  Receipt Date: 20050506
  Transmission Date: 20051028
  Serious: Yes (Hospitalization, Other)
  Sender: FDA-Public Use
  Company Number: KII-2005-0016562

PATIENT
  Sex: Male

DRUGS (3)
  1. OXYCONTIN [Suspect]
     Dosage: UNK, ORAL
     Route: 048
  2. TESTOSTERONE [Suspect]
     Dosage: PARENTERAL
     Route: 051
  3. BENZODIAZEPINE DERIVATIVES [Suspect]
     Dosage: UNK
     Route: 065

REACTIONS (19)
  - AGITATION [None]
  - BLOOD CREATINE PHOSPHOKINASE INCREASED [None]
  - BLOOD CREATINE PHOSPHOKINASE MB INCREASED [None]
  - BLOOD ELECTROLYTES DECREASED [None]
  - BLOOD GLUCOSE DECREASED [None]
  - BLOOD MAGNESIUM DECREASED [None]
  - BLOOD PHOSPHORUS DECREASED [None]
  - BLOOD POTASSIUM DECREASED [None]
  - BODY TEMPERATURE INCREASED [None]
  - CALCIUM IONISED DECREASED [None]
  - CONVULSION [None]
  - DEPRESSED LEVEL OF CONSCIOUSNESS [None]
  - HYPERHIDROSIS [None]
  - HYPOTENSION [None]
  - MYDRIASIS [None]
  - SINUS TACHYCARDIA [None]
  - TOXICOLOGIC TEST ABNORMAL [None]
  - TREMOR [None]
  - TROPONIN INCREASED [None]
